FAERS Safety Report 5602458-9 (Version None)
Quarter: 2008Q1

REPORT INFORMATION
  Report Type: 
  Country: None (occurrence: None)
  Receive Date: 20080125
  Receipt Date: 20080117
  Transmission Date: 20080703
  Serious: Yes (Hospitalization)
  Sender: FDA-Public Use
  Company Number: B0502082A

PATIENT
  Age: 48 Year
  Sex: Female

DRUGS (1)
  1. NIQUITIN CQ 4MG LOZENGE [Suspect]
     Dosage: 1LOZ SINGLE DOSE
     Route: 002
     Dates: start: 20080103, end: 20080103

REACTIONS (7)
  - ANAPHYLACTIC SHOCK [None]
  - ANGIOPATHY [None]
  - DYSPNOEA [None]
  - HYPERSENSITIVITY [None]
  - PALPITATIONS [None]
  - PHARYNGEAL OEDEMA [None]
  - THROAT TIGHTNESS [None]
